FAERS Safety Report 21488603 (Version 3)
Quarter: 2023Q1

REPORT INFORMATION
  Report Type: Report from Study
  Country: TR (occurrence: TR)
  Receive Date: 20221021
  Receipt Date: 20230112
  Transmission Date: 20230418
  Serious: Yes (Hospitalization)
  Sender: FDA-Public Use
  Company Number: TR-ABBVIE-4168166

PATIENT
  Age: 62 Year
  Sex: Male
  Weight: 61 kg

DRUGS (13)
  1. CARBIDOPA\LEVODOPA [Suspect]
     Active Substance: CARBIDOPA\LEVODOPA
     Indication: Parkinson^s disease
     Dosage: MORNING DOSE (ML) 8.00, CONTINUOUS DOSE (ML) 3.50, EXTRA DOSE (ML) 1.50
     Route: 050
     Dates: start: 20220222, end: 20221018
  2. CARBIDOPA\LEVODOPA [Suspect]
     Active Substance: CARBIDOPA\LEVODOPA
     Dosage: MORNING DOSE (ML) 8.00, CONTINUOUS DOSE (ML) 3.50, EXTRA DOSE (ML) 1.70
     Route: 050
     Dates: start: 20221018, end: 20230110
  3. CARBIDOPA\LEVODOPA [Suspect]
     Active Substance: CARBIDOPA\LEVODOPA
     Dosage: MORNING DOSE (ML): 8.00 CONTINUOUS DOSE (ML): 3.70 EXTRA DOSE (ML): 1.70
     Route: 050
     Dates: start: 20230110
  4. AVODART [Concomitant]
     Active Substance: DUTASTERIDE
     Indication: Prostatic disorder
     Dosage: 0.5 MG
     Route: 048
  5. Uromax [Concomitant]
     Indication: Product used for unknown indication
     Dosage: 0.4 MG
     Route: 048
     Dates: start: 2017, end: 20220629
  6. METFORMIN HYDROCHLORIDE [Concomitant]
     Active Substance: METFORMIN HYDROCHLORIDE
     Indication: Diabetes mellitus
     Dosage: 2000 MILLIGRAM
     Route: 048
     Dates: start: 2012
  7. VESICARE [Concomitant]
     Active Substance: SOLIFENACIN SUCCINATE
     Indication: Incontinence
     Dosage: 5 MILLIGRAM
     Route: 048
     Dates: start: 2022
  8. KEDAY XR [Concomitant]
     Indication: Sleep disorder therapy
     Dosage: 50 MILLIGRAM
     Route: 048
     Dates: start: 2019
  9. CEDRINA [Concomitant]
     Indication: Hallucination
     Dosage: 100 MILLIGRAM
     Route: 048
     Dates: start: 2021
  10. Exelon, Patch [Concomitant]
     Indication: Dementia
     Dosage: 15 MILLIGRAM
     Route: 062
     Dates: start: 2020
  11. DOPADEX SR [Concomitant]
     Indication: Parkinson^s disease
     Dosage: 100 MILLIGRAM?FREQUENCY TEXT: 1X2
     Route: 048
     Dates: start: 2020
  12. RIVOTRIL [Concomitant]
     Active Substance: CLONAZEPAM
     Indication: Depression
     Dosage: 1 MILLIGRAM
     Route: 048
     Dates: start: 2018
  13. BENSERAZIDE HYDROCHLORIDE\LEVODOPA [Concomitant]
     Active Substance: BENSERAZIDE HYDROCHLORIDE\LEVODOPA
     Indication: Parkinson^s disease
     Dosage: 125 MILLIGRAM
     Route: 048
     Dates: start: 20221018

REACTIONS (3)
  - Prostatic disorder [Recovered/Resolved]
  - Bradykinesia [Recovered/Resolved]
  - Bradykinesia [Not Recovered/Not Resolved]

NARRATIVE: CASE EVENT DATE: 20220629
